FAERS Safety Report 6071795-9 (Version None)
Quarter: 2009Q1

REPORT INFORMATION
  Report Type: 
  Country: None (occurrence: None)
  Receive Date: 20090210
  Receipt Date: 20090130
  Transmission Date: 20090719
  Serious: Yes (Other)
  Sender: FDA-Public Use
  Company Number: PHHY2009CR03488

PATIENT

DRUGS (6)
  1. TRILEPTAL [Suspect]
     Indication: EPILEPSY
     Dosage: 300 MG
     Route: 048
     Dates: start: 20080801
  2. TRILEPTAL [Suspect]
     Dosage: 300 MG, BID
     Route: 048
     Dates: start: 20081001
  3. TRILEPTAL [Suspect]
     Dosage: 300 MG
     Route: 048
     Dates: end: 20090101
  4. NORVASC [Concomitant]
  5. LANSOPRAZOLE [Concomitant]
  6. AVANTIN [Concomitant]

REACTIONS (3)
  - ATAXIA [None]
  - DISORIENTATION [None]
  - URINARY INCONTINENCE [None]
